FAERS Safety Report 15807621 (Version 2)
Quarter: 2022Q1

REPORT INFORMATION
  Report Type: Spontaneous
  Country: GR (occurrence: GR)
  Receive Date: 20190110
  Receipt Date: 20220120
  Transmission Date: 20220424
  Serious: Yes (Other)
  Sender: FDA-Public Use
  Company Number: GR-EMA-DD-20180514-ISHAEVHP-102642

PATIENT
  Age: 58 Year
  Sex: Female

DRUGS (8)
  1. DICLOFENAC SODIUM [Suspect]
     Active Substance: DICLOFENAC SODIUM
     Indication: Myalgia
     Route: 065
     Dates: start: 20180312
  2. LONARID [Suspect]
     Active Substance: ACETAMINOPHEN\AMOBARBITAL\CAFFEINE\CODEINE PHOSPHATE
     Indication: Headache
     Route: 048
     Dates: start: 20180314
  3. ZOVIRAX [Interacting]
     Active Substance: ACYCLOVIR
     Indication: Herpes virus infection
     Route: 065
     Dates: start: 20180310, end: 20180320
  4. ACETAMINOPHEN\ORPHENADRINE CITRATE [Interacting]
     Active Substance: ACETAMINOPHEN\ORPHENADRINE CITRATE
     Indication: Myalgia
     Route: 016
     Dates: start: 20180312
  5. TENORMIN [Interacting]
     Active Substance: ATENOLOL
     Indication: Tachycardia
     Route: 016
  6. ACECLOFENAC [Interacting]
     Active Substance: ACECLOFENAC
     Indication: Myalgia
     Route: 065
     Dates: start: 20180312
  7. PANADOL EXTRA [Interacting]
     Active Substance: ACETAMINOPHEN\CAFFEINE
     Indication: Headache
     Route: 065
     Dates: start: 20180314
  8. AMOXIL [Interacting]
     Active Substance: AMOXICILLIN
     Indication: Tooth abscess
     Route: 065
     Dates: start: 20180312, end: 20180318

REACTIONS (5)
  - Vitreous detachment [Not Recovered/Not Resolved]
  - Hypoaesthesia [Recovered/Resolved]
  - Drug interaction [Not Recovered/Not Resolved]
  - Vertigo [Recovered/Resolved]
  - Vision blurred [Not Recovered/Not Resolved]

NARRATIVE: CASE EVENT DATE: 20180314
